FAERS Safety Report 6727696-3 (Version None)
Quarter: 2010Q2

REPORT INFORMATION
  Report Type: 
  Country: None (occurrence: None)
  Receive Date: 20100514
  Receipt Date: 20100514
  Transmission Date: 20101027
  Serious: No
  Sender: FDA-Public Use
  Company Number: None

PATIENT
  Age: 55 Year
  Sex: Female
  Weight: 56.6996 kg

DRUGS (1)
  1. DIVIGEL [Suspect]
     Indication: THERAPEUTIC PROCEDURE
     Dosage: 1MG ONCE PER DAY TOP
     Route: 061
     Dates: start: 20100425, end: 20100428

REACTIONS (1)
  - STROKE IN EVOLUTION [None]
